FAERS Safety Report 11358753 (Version 1)
Quarter: 2015Q3

REPORT INFORMATION
  Report Type: Spontaneous
  Country: US (occurrence: None)
  Receive Date: 20150716
  Receipt Date: 20150716
  Transmission Date: 20151125
  Serious: Yes (Hospitalization)
  Sender: FDA-Public Use
  Company Number: 2014PROUSA04148

PATIENT
  Age: 59 Year
  Sex: Male
  Weight: 84.4 kg

DRUGS (5)
  1. SIMVASTATIN. [Concomitant]
     Active Substance: SIMVASTATIN
  2. PROVENGE [Suspect]
     Active Substance: SIPULEUCEL-T
     Indication: PROSTATE CANCER
     Route: 042
     Dates: start: 20141020, end: 20141020
  3. COZAAR (LOSARTAN POTASSIUM) [Concomitant]
  4. ZYTIGA (ABIRATERONE ACETATE) [Concomitant]
  5. PREDNISONE. [Concomitant]
     Active Substance: PREDNISONE

REACTIONS (2)
  - Device related infection [None]
  - Culture positive [None]

NARRATIVE: CASE EVENT DATE: 20141112
